FAERS Safety Report 4736721-0 (Version None)
Quarter: 2005Q3

REPORT INFORMATION
  Report Type: 
  Country: None (occurrence: None)
  Receive Date: 20050808
  Receipt Date: 20050808
  Transmission Date: 20060218
  Serious: No
  Sender: FDA-Public Use
  Company Number: None

PATIENT
  Age: 47 Year
  Sex: Female

DRUGS (1)
  1. TEQUIN [Suspect]
     Indication: PNEUMONIA
     Dosage: 400 MG PO DAILY
     Route: 048
     Dates: start: 20050516, end: 20050517

REACTIONS (1)
  - RASH PRURITIC [None]
